FAERS Safety Report 23861928 (Version 1)
Quarter: 2024Q2

REPORT INFORMATION
  Report Type: Spontaneous
  Country: US (occurrence: None)
  Receive Date: 20240515
  Receipt Date: 20240515
  Transmission Date: 20240716
  Serious: Yes (Hospitalization, Other)
  Sender: FDA-Public Use
  Company Number: None

PATIENT
  Age: 79 Year
  Sex: Female

DRUGS (10)
  1. AMBRISENTAN [Suspect]
     Active Substance: AMBRISENTAN
     Indication: Pulmonary hypertension
     Dosage: FREQUENCY : DAILY;?
     Route: 048
     Dates: start: 20220701
  2. TADALAFIL [Suspect]
     Active Substance: TADALAFIL
  3. FUROSEMIDE [Concomitant]
     Active Substance: FUROSEMIDE
  4. SPIRONOLACTONE [Concomitant]
  5. FLONASE [Concomitant]
     Active Substance: FLUTICASONE PROPIONATE
  6. brimonidine opht drop [Concomitant]
  7. dorzolamide opht drop [Concomitant]
  8. netarsudil opht drop [Concomitant]
  9. timolol opht drop [Concomitant]
  10. latanopros opht drop [Concomitant]

REACTIONS (1)
  - Syncope [None]

NARRATIVE: CASE EVENT DATE: 20240416
